FAERS Safety Report 5400946-1 (Version None)
Quarter: 2007Q3

REPORT INFORMATION
  Report Type: 
  Country: None (occurrence: None)
  Receive Date: 20070730
  Receipt Date: 20070723
  Transmission Date: 20080115
  Serious: Yes (Other)
  Sender: FDA-Public Use
  Company Number: DE-GENENTECH-244939

PATIENT
  Age: 72 Year
  Sex: Female

DRUGS (2)
  1. LUCENTIS [Suspect]
     Indication: MACULAR DEGENERATION
     Route: 031
  2. ANTIHYPERTENSIVE AGENTS [Concomitant]
     Indication: HYPERTENSION

REACTIONS (1)
  - HYPERTENSIVE CRISIS [None]
